FAERS Safety Report 23333162 (Version 1)
Quarter: 2023Q4

REPORT INFORMATION
  Report Type: Spontaneous
  Country: US (occurrence: US)
  Receive Date: 20231222
  Receipt Date: 20231222
  Transmission Date: 20240110
  Serious: No
  Sender: FDA-Public Use
  Company Number: US-CTI BIOPHARMA-2023US04120

PATIENT

DRUGS (18)
  1. VONJO [Suspect]
     Active Substance: PACRITINIB
     Indication: Essential thrombocythaemia
     Dosage: 100 MG, 3 DOSE PER 1 D (200MG IN THE MORNING, 100MG AT NIGHT)
     Route: 048
  2. AMITRIPTYLINE [Concomitant]
     Active Substance: AMITRIPTYLINE
  3. BREZTRI [Concomitant]
     Active Substance: BUDESONIDE\FORMOTEROL\GLYCOPYRROLATE
  4. BUDESONIDE [Concomitant]
     Active Substance: BUDESONIDE
  5. FISH OIL [Concomitant]
     Active Substance: FISH OIL
  6. CYANOCOBALAMIN [Concomitant]
     Active Substance: CYANOCOBALAMIN
  7. ELIQUIS [Concomitant]
     Active Substance: APIXABAN
  8. GABAPENTIN [Concomitant]
     Active Substance: GABAPENTIN
  9. GAMUNEX-C [Concomitant]
     Active Substance: HUMAN IMMUNOGLOBULIN G
  10. LEVOTHYROXINE [Concomitant]
     Active Substance: LEVOTHYROXINE
  11. POTASSIUM [Concomitant]
     Active Substance: POTASSIUM
  12. PROAIR HFA [Concomitant]
     Active Substance: ALBUTEROL SULFATE
  13. FAMOTIDINE [Concomitant]
     Active Substance: FAMOTIDINE
  14. SERTRALINE [Concomitant]
     Active Substance: SERTRALINE HYDROCHLORIDE
  15. MAGNESIUM [Concomitant]
     Active Substance: MAGNESIUM
  16. MELATONIN [Concomitant]
     Active Substance: MELATONIN
  17. FISH OIL [Concomitant]
     Active Substance: FISH OIL
  18. CHOLECALCIFEROL [Concomitant]
     Active Substance: CHOLECALCIFEROL

REACTIONS (4)
  - Fatigue [Unknown]
  - Malaise [Unknown]
  - Decreased appetite [Unknown]
  - Pain in extremity [Unknown]
